FAERS Safety Report 16053616 (Version 2)
Quarter: 2019Q2

REPORT INFORMATION
  Report Type: Spontaneous
  Country: US (occurrence: US)
  Receive Date: 20190308
  Receipt Date: 20190501
  Transmission Date: 20190711
  Serious: No
  Sender: FDA-Public Use
  Company Number: US-PFIZER INC-2019098456

PATIENT
  Age: 49 Year
  Sex: Female
  Weight: 79 kg

DRUGS (9)
  1. RELAFEN [Concomitant]
     Active Substance: NABUMETONE
     Dosage: 500 MG, 2X/DAY
     Route: 048
  2. TOVIAZ [Suspect]
     Active Substance: FESOTERODINE FUMARATE
     Indication: BLADDER PAIN
     Dosage: 4 MG, DAILY
     Route: 048
     Dates: start: 20180105, end: 20180615
  3. FOLVITE [FOLIC ACID] [Concomitant]
     Dosage: 1 MG, DAILY (EXCEPT SATURDAY)
     Route: 048
  4. CYMBALTA [Concomitant]
     Active Substance: DULOXETINE HYDROCHLORIDE
     Dosage: 60 MG, UNK
     Route: 048
  5. PARAFON FORTE DSC [Concomitant]
     Active Substance: CHLORZOXAZONE
     Indication: MUSCLE SPASMS
     Dosage: 500 MG, AS NEEDED (3 TIMES DAILY AS NEEDED FOR SPASM)
     Route: 048
  6. NEURONTIN [Concomitant]
     Active Substance: GABAPENTIN
     Dosage: 600 MG, 2X/DAY
     Route: 048
  7. ZYRTEC [Concomitant]
     Active Substance: CETIRIZINE HYDROCHLORIDE
     Dosage: 10 MG, DAILY
     Route: 048
  8. TOVIAZ [Suspect]
     Active Substance: FESOTERODINE FUMARATE
     Dosage: 4 MG, DAILY
     Route: 048
  9. PRILOSEC [Concomitant]
     Active Substance: OMEPRAZOLE MAGNESIUM
     Dosage: 40 MG, 2X/DAY (TAKE 1 CAPSULE (40 MG) BY MOUTH EVERY 12 HOURS)
     Route: 048

REACTIONS (3)
  - Product use in unapproved indication [Unknown]
  - Bladder spasm [Unknown]
  - Haematuria [Unknown]
